FAERS Safety Report 16238084 (Version 1)
Quarter: 2019Q2

REPORT INFORMATION
  Report Type: Spontaneous
  Country: CH (occurrence: CH)
  Receive Date: 20190425
  Receipt Date: 20190425
  Transmission Date: 20190711
  Serious: Yes (Hospitalization, Other)
  Sender: FDA-Public Use
  Company Number: CH-LEADING PHARMA, LLC-2066214

PATIENT
  Age: 15 Year
  Sex: Female

DRUGS (1)
  1. FUROSEMIDE. [Suspect]
     Active Substance: FUROSEMIDE
     Indication: DRUG ABUSE

REACTIONS (9)
  - Electrocardiogram repolarisation abnormality [Recovered/Resolved]
  - Metabolic alkalosis [Recovered/Resolved]
  - Hypokalaemia [Recovered/Resolved]
  - Hypomagnesaemia [Recovered/Resolved]
  - Hypochloraemia [Recovered/Resolved]
  - Drug abuse [None]
  - Hyponatraemia [Recovered/Resolved]
  - Prerenal failure [Recovered/Resolved]
  - Nephrocalcinosis [Unknown]
